FAERS Safety Report 7576374-X (Version None)
Quarter: 2011Q2

REPORT INFORMATION
  Report Type: 
  Country: None (occurrence: None)
  Receive Date: 20110628
  Receipt Date: 20110609
  Transmission Date: 20111010
  Serious: Yes (Other)
  Sender: FDA-Public Use
  Company Number: US-BAYER-2011-020922

PATIENT
  Sex: Female
  Weight: 95.238 kg

DRUGS (8)
  1. MULTI-VITAMINS [Concomitant]
  2. NSAID'S [Concomitant]
  3. AMINO ACIDS [Concomitant]
  4. YAZ [Suspect]
     Indication: CONTRACEPTION
     Dosage: UNK, QD
     Dates: start: 20060601, end: 20060801
  5. IBUPROFEN [Concomitant]
  6. YAZ [Suspect]
     Indication: OVARIAN CYST
  7. BENTYL [Concomitant]
  8. ROGAINE [Concomitant]
     Indication: ALOPECIA

REACTIONS (3)
  - AMNESIA [None]
  - PAIN [None]
  - THROMBOTIC THROMBOCYTOPENIC PURPURA [None]
